FAERS Safety Report 9538668 (Version 1)
Quarter: 2013Q2

REPORT INFORMATION
  Report Type: Spontaneous
  Country: US (occurrence: None)
  Receive Date: 20130507
  Receipt Date: 20130507
  Transmission Date: 20140414
  Serious: No
  Sender: FDA-Public Use
  Company Number: PHEH213US001424

PATIENT
  Age: 66 Year
  Sex: Female
  Weight: 71.2 kg

DRUGS (4)
  1. AFINITOR (RAD) TABLET, 10MG [Suspect]
     Dosage: 10 MG, EVERY DAY, ORAL
     Route: 048
  2. SYNTHROID (LEVOTHROXINE SODIUM) [Concomitant]
  3. NORCO (HYDROCODONE BITARTRATE, PARACETAMOL) [Concomitant]
  4. EXTAVIA (INTERFERON BETA-1B) [Concomitant]

REACTIONS (1)
  - Stomatitis [None]
